FAERS Safety Report 9057426 (Version 1)
Quarter: 2013Q1

REPORT INFORMATION
  Report Type: Spontaneous
  Country: US (occurrence: US)
  Receive Date: 20130204
  Receipt Date: 20130204
  Transmission Date: 20140127
  Serious: No
  Sender: FDA-Public Use
  Company Number: US-VERTEX PHARMACEUTICALS INC.-2013-001457

PATIENT
  Age: 41 None
  Sex: Male
  Weight: 111 kg

DRUGS (4)
  1. INCIVEK [Suspect]
     Indication: HEPATITIS C
     Dosage: 750 MG, TID
     Route: 048
     Dates: start: 20130104
  2. RIBAVIRIN [Suspect]
     Indication: HEPATITIS C
     Dosage: 600 MG AM, 800 MG PM
     Dates: start: 20130104
  3. PEGASYS [Suspect]
     Indication: HEPATITIS C
     Dosage: UNK
     Dates: start: 20130104
  4. PSYCH MEDS [Concomitant]

REACTIONS (3)
  - Inappropriate schedule of drug administration [Recovered/Resolved]
  - Dry mouth [Not Recovered/Not Resolved]
  - Injection site erythema [Not Recovered/Not Resolved]
